FAERS Safety Report 9684918 (Version 1)
Quarter: 2013Q4

REPORT INFORMATION
  Report Type: Report from Study
  Country: FR (occurrence: FR)
  Receive Date: 20131113
  Receipt Date: 20131113
  Transmission Date: 20140711
  Serious: Yes (Other)
  Sender: FDA-Public Use
  Company Number: FR-ROCHE-1300384

PATIENT
  Age: 53 Year
  Sex: Male

DRUGS (1)
  1. ZELBORAF [Suspect]
     Indication: PRODUCT USED FOR UNKNOWN INDICATION
     Route: 065

REACTIONS (5)
  - Allodynia [Not Recovered/Not Resolved]
  - Pain in extremity [Unknown]
  - Headache [Unknown]
  - Eye pain [Unknown]
  - Pain in extremity [Unknown]
